FAERS Safety Report 5978108-9 (Version None)
Quarter: 2008Q4

REPORT INFORMATION
  Report Type: 
  Country: None (occurrence: None)
  Receive Date: 20081204
  Receipt Date: 20081126
  Transmission Date: 20090506
  Serious: Yes (Death)
  Sender: FDA-Public Use
  Company Number: GB-RANBAXY-2008RR-19622

PATIENT
  Age: 77 Year
  Sex: Female

DRUGS (16)
  1. GABAPENTIN [Suspect]
     Dosage: 600 MG, TID
     Route: 048
     Dates: start: 20080811
  2. AMINOPHYLLIN TAB [Suspect]
     Dosage: 225 MG, BID
     Route: 048
     Dates: start: 20080810
  3. CARBOCYSTEINE [Suspect]
     Dosage: 375 MG, TID
     Route: 048
     Dates: start: 20080810
  4. SIMVASTATIN [Suspect]
     Dosage: 40 MG, QD
     Route: 048
     Dates: start: 20060101
  5. AMITRIPTYLINE HCL [Concomitant]
     Dosage: 10 MG, QD
     Route: 065
  6. ASPIRIN [Concomitant]
     Dosage: 75 MG, QD
     Route: 065
  7. DILTIAZEM [Concomitant]
     Dosage: 180 MG, QD
     Route: 065
  8. DIPYRIDAMOLE [Concomitant]
     Dosage: 200 MG, BID
     Route: 065
  9. ENALAPRIL MALEATE [Concomitant]
     Dosage: 2.5 MG, QD
     Route: 065
  10. OMEPRAZOLE [Concomitant]
     Dosage: 20 MG, QD
     Route: 065
  11. ACETAMINOPHEN [Concomitant]
     Dosage: 1 G, QID
     Route: 065
  12. PHYLLOCONTIN [Concomitant]
     Dosage: 225 MG, BID
     Route: 065
  13. QVAR 40 [Concomitant]
     Dosage: 2 DF, BID
     Route: 055
  14. ALBUTEROL SULFATE [Concomitant]
     Dosage: 2 DF, PRN
     Route: 055
  15. TIOTROPIUM BROMIDE [Concomitant]
     Dosage: 18 UG, QD
     Route: 055
  16. TRAMADOL HCL [Concomitant]
     Dosage: 100 MG, QID
     Route: 065

REACTIONS (1)
  - RENAL FAILURE [None]
